FAERS Safety Report 23677428 (Version 1)
Quarter: 2024Q1

REPORT INFORMATION
  Report Type: Report from Study
  Country: IT (occurrence: IT)
  Receive Date: 20240327
  Receipt Date: 20240327
  Transmission Date: 20240409
  Serious: Yes (Other)
  Sender: FDA-Public Use
  Company Number: IT-GILEAD-2024-0664986

PATIENT
  Age: 59 Year
  Sex: Female

DRUGS (2)
  1. TENOFOVIR DISOPROXIL [Suspect]
     Active Substance: TENOFOVIR DISOPROXIL
     Indication: Hepatitis B
     Dosage: UNK
     Route: 065
     Dates: end: 202309
  2. BARACLUDE [Concomitant]
     Active Substance: ENTECAVIR
     Dosage: UNK
     Route: 065

REACTIONS (4)
  - Hepatitis D [Unknown]
  - Hepatic cirrhosis [Unknown]
  - Renal disorder [Unknown]
  - Blood creatinine increased [Unknown]
